FAERS Safety Report 10652217 (Version 2)
Quarter: 2014Q4

REPORT INFORMATION
  Report Type: Spontaneous
  Country: JP (occurrence: JP)
  Receive Date: 20141215
  Receipt Date: 20141215
  Transmission Date: 20150529
  Serious: Yes (Other)
  Sender: FDA-Public Use
  Company Number: JP-TEVA-521058ISR

PATIENT
  Age: 72 Year
  Sex: Male
  Weight: 59 kg

DRUGS (9)
  1. (TS)IRINOTECAN HYDROCHLORIDE HYDRATE INTRAVENOUS INFUSION ^TAIYO^, INJ [Suspect]
     Active Substance: IRINOTECAN HYDROCHLORIDE
     Dosage: AS FOLFIRI+BV THERAPY OF SECOND CYCLE
     Route: 042
     Dates: start: 20140408
  2. 5-FU [Concomitant]
     Active Substance: FLUOROURACIL
     Dosage: AS FOLFIRI+BV THERAPY OF SECOND CYCLE
     Dates: start: 20140408
  3. (TS)IRINOTECAN HYDROCHLORIDE HYDRATE INTRAVENOUS INFUSION ^TAIYO^, INJ [Suspect]
     Active Substance: IRINOTECAN HYDROCHLORIDE
     Dosage: AS FOLFIRI+BV THERAPY OF SECOND CYCLE
     Route: 042
     Dates: start: 20140422
  4. LEUCOVORIN [Concomitant]
     Active Substance: LEUCOVORIN
     Dosage: AS FOLFIRI+BV THERAPY OF FIRST CYCLE
     Dates: start: 20140312
  5. AVASTIN [Concomitant]
     Active Substance: BEVACIZUMAB
     Dosage: AS FOLFIRI+BV THERAPY OF FIRST CYCLE
     Dates: start: 20140312
  6. LEUCOVORIN [Concomitant]
     Active Substance: LEUCOVORIN
     Dosage: AS FOLFIRI+BV THERAPY OF SECOND CYCLE
     Dates: start: 20140408
  7. AVASTIN [Concomitant]
     Active Substance: BEVACIZUMAB
     Dosage: AS FOLFIRI+BV THERAPY OF SECOND CYCLE
     Dates: start: 20140408
  8. 5-FU [Concomitant]
     Active Substance: FLUOROURACIL
     Dosage: AS FOLFIRI+BV THERAPY OF FIRST CYCLE
     Dates: start: 20140312
  9. (TS)IRINOTECAN HYDROCHLORIDE HYDRATE INTRAVENOUS INFUSION ^TAIYO^, INJ [Suspect]
     Active Substance: IRINOTECAN HYDROCHLORIDE
     Dosage: AS FOLFIRI+BV THERAPY OF FIRST CYCLE
     Route: 042
     Dates: start: 20140312

REACTIONS (3)
  - Hyperhidrosis [Recovering/Resolving]
  - Peripheral coldness [Unknown]
  - Cyanosis [Unknown]

NARRATIVE: CASE EVENT DATE: 20140408
